FAERS Safety Report 8909982 (Version 1)
Quarter: 2012Q4

REPORT INFORMATION
  Report Type: 
  Country: US (occurrence: US)
  Receive Date: 20121114
  Receipt Date: 20121114
  Transmission Date: 20130627
  Serious: No
  Sender: FDA-Public Use
  Company Number: US-ASTRAZENECA-2012SE83275

PATIENT
  Age: 88 Year
  Sex: Female
  Weight: 70.8 kg

DRUGS (5)
  1. ASPIRIN [Suspect]
     Route: 048
  2. PLAVIX [Suspect]
     Route: 048
  3. NEXIUM [Suspect]
     Indication: GASTRIC ULCER
     Route: 048
     Dates: start: 20121030
  4. NEXIUM [Suspect]
     Indication: GASTRIC ULCER
     Route: 048
     Dates: start: 20121031
  5. SINEMET [Concomitant]
     Indication: RESTLESS LEGS SYNDROME
     Dosage: 25/100MG,QID
     Route: 048

REACTIONS (3)
  - Drug hypersensitivity [Unknown]
  - Incorrect dose administered [Unknown]
  - Off label use [Unknown]
